FAERS Safety Report 14336968 (Version 1)
Quarter: 2017Q4

REPORT INFORMATION
  Report Type: Spontaneous
  Country: DE (occurrence: DE)
  Receive Date: 20171229
  Receipt Date: 20171229
  Transmission Date: 20180321
  Serious: Yes (Life-Threatening, Hospitalization)
  Sender: FDA-Public Use
  Company Number: DE-009507513-1712DEU012001

PATIENT
  Age: 77 Year
  Sex: Female
  Weight: 65 kg

DRUGS (6)
  1. METOPROLOL. [Concomitant]
     Active Substance: METOPROLOL
     Indication: HYPERTENSION
     Route: 048
  2. VALSARTAN. [Concomitant]
     Active Substance: VALSARTAN
     Indication: HYPERTENSION
     Route: 048
  3. KEYTRUDA [Suspect]
     Active Substance: PEMBROLIZUMAB
     Indication: MALIGNANT MELANOMA
     Dosage: 130 MG/3W
     Route: 042
     Dates: start: 20170110, end: 20170404
  4. DIPYRONE [Concomitant]
     Active Substance: DIPYRONE
     Indication: HAEMORRHOID OPERATION
     Route: 048
  5. LEVOTHYROXINE SODIUM. [Concomitant]
     Active Substance: LEVOTHYROXINE SODIUM
     Indication: HYPOTHYROIDISM
     Route: 048
  6. PANTOPRAZOLE [Concomitant]
     Active Substance: PANTOPRAZOLE
     Indication: PROPHYLAXIS
     Route: 048

REACTIONS (9)
  - Myoclonus [Recovered/Resolved]
  - Encephalitis [Recovered/Resolved]
  - Dysphagia [Recovered/Resolved]
  - Disturbance in attention [Recovered/Resolved]
  - Hypertonia [Recovered/Resolved]
  - Pyrexia [Recovered/Resolved]
  - Immunisation reaction [Recovered/Resolved]
  - Sepsis [Recovered/Resolved]
  - Thrombocytosis [Recovered/Resolved]

NARRATIVE: CASE EVENT DATE: 201707
